FAERS Safety Report 11552332 (Version 1)
Quarter: 2015Q3

REPORT INFORMATION
  Report Type: Spontaneous
  Country: US (occurrence: None)
  Receive Date: 20150924
  Receipt Date: 20150924
  Transmission Date: 20151125
  Serious: Yes (Hospitalization, Disabling)
  Sender: FDA-Public Use
  Company Number: None

PATIENT
  Age: 46 Year
  Sex: Female
  Weight: 112.49 kg

DRUGS (9)
  1. GARLIC PILLS [Concomitant]
  2. MELATONIN [Concomitant]
     Active Substance: MELATONIN
  3. VISTARIL [Concomitant]
     Active Substance: HYDROXYZINE PAMOATE
  4. ATIVAN [Suspect]
     Active Substance: LORAZEPAM
     Indication: PANIC ATTACK
     Route: 042
     Dates: start: 20150911, end: 20150911
  5. DEXITANT [Concomitant]
  6. ATIVAN [Suspect]
     Active Substance: LORAZEPAM
     Indication: ANXIETY
     Route: 042
     Dates: start: 20150911, end: 20150911
  7. SYNTHROID [Concomitant]
     Active Substance: LEVOTHYROXINE SODIUM
  8. GABAPINE [Concomitant]
  9. BABY ASPIRIN [Concomitant]
     Active Substance: ASPIRIN

REACTIONS (4)
  - Tremor [None]
  - Impaired work ability [None]
  - Electroencephalogram abnormal [None]
  - Impaired driving ability [None]

NARRATIVE: CASE EVENT DATE: 20150911
